FAERS Safety Report 9629566 (Version 3)
Quarter: 2014Q1

REPORT INFORMATION
  Report Type: Spontaneous
  Country: JP (occurrence: JP)
  Receive Date: 20131017
  Receipt Date: 20140312
  Transmission Date: 20141002
  Serious: Yes (Life-Threatening, Hospitalization)
  Sender: FDA-Public Use
  Company Number: JP-UCBSA-100221

PATIENT
  Age: 69 Year
  Sex: Female
  Weight: 64 kg

DRUGS (15)
  1. CIMZIA [Suspect]
     Indication: RHEUMATOID ARTHRITIS
     Dosage: 200 MG SYRINGE
     Route: 058
     Dates: start: 20130817, end: 20130830
  2. ORENCIA [Suspect]
     Indication: RHEUMATOID ARTHRITIS
     Route: 041
     Dates: start: 20130919, end: 20130919
  3. ORENCIA [Suspect]
     Indication: RHEUMATOID ARTHRITIS
     Route: 041
     Dates: start: 20120417, end: 20130720
  4. ORENCIA [Suspect]
     Indication: RHEUMATOID ARTHRITIS
     Route: 041
     Dates: start: 2010, end: 201210
  5. PREDNISOLONE [Concomitant]
     Route: 048
  6. CELECOX [Concomitant]
     Route: 048
  7. BLOPRESS [Concomitant]
  8. CRESTOR [Concomitant]
     Route: 048
  9. RHEUMATREX [Concomitant]
     Dosage: UNKNOWN
     Route: 048
  10. LOXONIN [Concomitant]
     Route: 048
  11. FOLIAMIN [Concomitant]
     Route: 048
  12. SEFTAC [Concomitant]
     Route: 048
  13. MAGLAX [Concomitant]
     Route: 048
  14. RABEPRAZOLE NA [Concomitant]
     Route: 048
  15. SIMPONI [Concomitant]
     Route: 058
     Dates: start: 20130913, end: 20130913

REACTIONS (2)
  - Acute leukaemia [Not Recovered/Not Resolved]
  - Drug effect decreased [Recovered/Resolved]
